FAERS Safety Report 9785336 (Version 1)
Quarter: 2013Q4

REPORT INFORMATION
  Report Type: Spontaneous
  Country: US (occurrence: US)
  Receive Date: 20131227
  Receipt Date: 20131227
  Transmission Date: 20140711
  Serious: No
  Sender: FDA-Public Use
  Company Number: US-MYLANLABS-2012S1023047

PATIENT
  Age: 55 Year
  Sex: Female
  Weight: 77.11 kg

DRUGS (4)
  1. LEVETIRACETAM TABLETS [Suspect]
     Indication: CONVULSION PROPHYLAXIS
     Route: 048
     Dates: start: 20120723
  2. CHEMOTHERAPEUTICS [Suspect]
     Indication: GLIOBLASTOMA
     Dates: end: 20121022
  3. BACTRIM [Concomitant]
  4. ZOFRAN [Concomitant]
     Indication: NAUSEA

REACTIONS (2)
  - White blood cell count decreased [Not Recovered/Not Resolved]
  - Decreased appetite [Not Recovered/Not Resolved]
